FAERS Safety Report 25808985 (Version 2)
Quarter: 2025Q3

REPORT INFORMATION
  Report Type: Spontaneous
  Country: US (occurrence: US)
  Receive Date: 20250916
  Receipt Date: 20250918
  Transmission Date: 20251021
  Serious: Yes (Hospitalization, Other)
  Sender: PFIZER
  Company Number: US-MLMSERVICE-20250904-PI631842-00270-1

PATIENT
  Age: 36 Year
  Sex: Female

DRUGS (2)
  1. METHYLPREDNISOLONE SODIUM SUCCINATE [Suspect]
     Active Substance: METHYLPREDNISOLONE SODIUM SUCCINATE
     Indication: Cervical radiculopathy
     Route: 008
  2. BUPIVACAINE HYDROCHLORIDE [Suspect]
     Active Substance: BUPIVACAINE HYDROCHLORIDE
     Indication: Cervical radiculopathy
     Route: 008

REACTIONS (6)
  - Deep vein thrombosis [Unknown]
  - Urinary retention [Unknown]
  - Quadriparesis [Not Recovered/Not Resolved]
  - Bradycardia [Recovering/Resolving]
  - Drug ineffective [Unknown]
  - Off label use [Unknown]
